FAERS Safety Report 8319368-9 (Version None)
Quarter: 2012Q2

REPORT INFORMATION
  Report Type: 
  Country: None (occurrence: None)
  Receive Date: 20120427
  Receipt Date: 20120418
  Transmission Date: 20120825
  Serious: Yes (Other)
  Sender: FDA-Public Use
  Company Number: BE-BRISTOL-MYERS SQUIBB COMPANY-13701453

PATIENT
  Age: 53 Year
  Sex: Female

DRUGS (12)
  1. LACIDIPINE [Concomitant]
     Dates: start: 20061209
  2. MYCOPHENOLATE MOFETIL [Concomitant]
     Dates: start: 20061128
  3. METHYLPREDNISOLONE [Concomitant]
     Dates: start: 20061213, end: 20061226
  4. METOPROLOL SUCCINATE [Concomitant]
     Dates: start: 20061201, end: 20070123
  5. EUSAPRIM [Concomitant]
     Dates: start: 20031212, end: 20061226
  6. VALGANCICLOVIR [Concomitant]
     Dates: start: 20061211, end: 20070226
  7. ALPHACALCIDOL [Concomitant]
     Dates: start: 20061222, end: 20070116
  8. CALCIUM CARBONATE [Concomitant]
     Dates: start: 20061218, end: 20070116
  9. FUROSEMIDE [Concomitant]
     Dates: start: 20061220, end: 20061226
  10. SODIUM BICARBONATE [Concomitant]
     Indication: METABOLIC ACIDOSIS
     Dates: start: 20061219, end: 20070102
  11. OMEPRAZOLE [Concomitant]
     Dates: start: 20061130
  12. BELATACEPT [Suspect]
     Indication: RENAL TRANSPLANT
     Route: 042
     Dates: start: 20061127

REACTIONS (1)
  - PULMONARY HYPERTENSION [None]
